FAERS Safety Report 9739142 (Version 1)
Quarter: 2013Q4

REPORT INFORMATION
  Report Type: Spontaneous
  Country: US (occurrence: US)
  Receive Date: 20131209
  Receipt Date: 20131209
  Transmission Date: 20140711
  Serious: Yes (Life-Threatening)
  Sender: FDA-Public Use
  Company Number: US-ROXANE LABORATORIES, INC.-2013-RO-01906RO

PATIENT
  Age: 36 Year
  Sex: Male

DRUGS (1)
  1. BALSALAZIDE [Suspect]
     Indication: COLITIS ULCERATIVE

REACTIONS (1)
  - Pleuropericarditis [Recovered/Resolved]
